FAERS Safety Report 15633594 (Version 1)
Quarter: 2018Q4

REPORT INFORMATION
  Report Type: Report from Study
  Country: US (occurrence: US)
  Receive Date: 20181119
  Receipt Date: 20181119
  Transmission Date: 20190205
  Serious: Yes (Hospitalization)
  Sender: FDA-Public Use
  Company Number: US-SA-2018SA311631

PATIENT
  Age: 79 Year
  Sex: Female

DRUGS (1)
  1. INSULIN GLARGINE [Suspect]
     Active Substance: INSULIN GLARGINE
     Indication: DIABETES MELLITUS
     Dosage: 60 U, BID
     Route: 058

REACTIONS (7)
  - Chest pain [Recovering/Resolving]
  - Inability to afford medication [Unknown]
  - Wound [Recovered/Resolved]
  - Walking aid user [Recovering/Resolving]
  - Inappropriate schedule of product administration [Unknown]
  - Myocardial infarction [Recovering/Resolving]
  - Wheelchair user [Recovering/Resolving]
